FAERS Safety Report 8183707-2 (Version None)
Quarter: 2012Q1

REPORT INFORMATION
  Report Type: 
  Country: None (occurrence: None)
  Receive Date: 20120305
  Receipt Date: 20120228
  Transmission Date: 20120608
  Serious: No
  Sender: FDA-Public Use
  Company Number: PHHY2011GR43449

PATIENT
  Age: 26 Year
  Sex: Male

DRUGS (1)
  1. EXTAVIA [Suspect]
     Indication: MULTIPLE SCLEROSIS
     Dates: start: 20101123

REACTIONS (3)
  - DRUG INEFFECTIVE [None]
  - GAIT DISTURBANCE [None]
  - FATIGUE [None]
